FAERS Safety Report 17441439 (Version 13)
Quarter: 2021Q3

REPORT INFORMATION
  Report Type: Report from Study
  Country: FR (occurrence: FR)
  Receive Date: 20200220
  Receipt Date: 20210922
  Transmission Date: 20211014
  Serious: Yes (Death, Life-Threatening, Hospitalization, Disabling, Other)
  Sender: FDA-Public Use
  Company Number: FR-PFIZER INC-2018516281

PATIENT
  Age: 71 Year
  Sex: Male
  Weight: 84 kg

DRUGS (12)
  1. NIVOLUMAB [Suspect]
     Active Substance: NIVOLUMAB
     Dosage: UNK
  2. ATENOLOL. [Concomitant]
     Active Substance: ATENOLOL
     Indication: HYPERTENSION
     Dosage: UNK
     Dates: start: 201602
  3. SUTENT [Suspect]
     Active Substance: SUNITINIB MALATE
     Dosage: 50 MG, 1X/DAY
     Dates: end: 20171205
  4. LOXEN [NICARDIPINE HYDROCHLORIDE] [Concomitant]
     Active Substance: NICARDIPINE HYDROCHLORIDE
     Indication: HYPERTENSION
     Dosage: UNK
     Dates: start: 201512
  5. ARIXTRA [Concomitant]
     Active Substance: FONDAPARINUX SODIUM
     Indication: PHLEBITIS
     Dosage: UNK
     Dates: start: 201611
  6. SUTENT [Suspect]
     Active Substance: SUNITINIB MALATE
     Dosage: 37.5 MG, 1X/DAY
     Dates: start: 201711, end: 201711
  7. SUTENT [Suspect]
     Active Substance: SUNITINIB MALATE
     Indication: RENAL CANCER
     Dosage: 50 MG, 1X/DAY
     Dates: start: 201512
  8. HYDROCORTISONE. [Concomitant]
     Active Substance: HYDROCORTISONE
     Indication: ADRENAL INSUFFICIENCY
     Dosage: UNK
     Dates: start: 201507
  9. APROVEL [Concomitant]
     Active Substance: IRBESARTAN
     Indication: HYPERTENSION
     Dosage: UNK
     Dates: start: 201511
  10. INEXIUM [ESOMEPRAZOLE MAGNESIUM] [Concomitant]
     Active Substance: ESOMEPRAZOLE MAGNESIUM
     Indication: DYSPEPSIA
     Dosage: UNK
     Dates: start: 201607
  11. LEVOTHYROX [Concomitant]
     Active Substance: LEVOTHYROXINE
     Indication: HYPOTHYROIDISM
     Dosage: UNK
     Dates: start: 201702
  12. SUTENT [Suspect]
     Active Substance: SUNITINIB MALATE
     Dosage: UNK

REACTIONS (24)
  - Adrenal insufficiency [Fatal]
  - Adrenal insufficiency [Recovered/Resolved with Sequelae]
  - Hyperkalaemia [Recovered/Resolved]
  - Anastomotic fistula [Not Recovered/Not Resolved]
  - Hypothermia [Recovered/Resolved]
  - Metabolic acidosis [Recovered/Resolved]
  - Metabolic acidosis [Recovered/Resolved]
  - Pancreatitis acute [Recovered/Resolved]
  - Clostridium difficile colitis [Recovered/Resolved]
  - Enterococcal bacteraemia [Recovered/Resolved]
  - Adrenal insufficiency [Recovered/Resolved]
  - Septic shock [Not Recovered/Not Resolved]
  - Acute kidney injury [Recovered/Resolved]
  - Acute kidney injury [Not Recovered/Not Resolved]
  - Dehydration [Recovered/Resolved]
  - Hypotension [Recovered/Resolved]
  - Metabolic acidosis [Recovered/Resolved]
  - Neoplasm progression [Fatal]
  - Pelvic abscess [Not Recovered/Not Resolved]
  - Acute kidney injury [Not Recovered/Not Resolved]
  - Hyperkalaemia [Recovered/Resolved]
  - Abdominal abscess [Not Recovered/Not Resolved]
  - General physical health deterioration [Not Recovered/Not Resolved]
  - Malnutrition [Not Recovered/Not Resolved]

NARRATIVE: CASE EVENT DATE: 20171128
